FAERS Safety Report 4872105-2 (Version None)
Quarter: 2005Q4

REPORT INFORMATION
  Report Type: 
  Country: None (occurrence: None)
  Receive Date: 20051230
  Receipt Date: 20051214
  Transmission Date: 20060501
  Serious: Yes (Hospitalization)
  Sender: FDA-Public Use
  Company Number: CIO05020170

PATIENT
  Age: 8 Year
  Sex: Female
  Weight: 54.4 kg

DRUGS (1)
  1. METAMUCIL-2 [Suspect]
     Dosage: 1 CAPSUL, 1/DAY,  ORAL
     Route: 048
     Dates: start: 20050312

REACTIONS (1)
  - CEREBROVASCULAR ACCIDENT [None]
